FAERS Safety Report 4687922-1 (Version None)
Quarter: 2005Q2

REPORT INFORMATION
  Report Type: 
  Country: None (occurrence: None)
  Receive Date: 20050610
  Receipt Date: 20050609
  Transmission Date: 20051028
  Serious: Yes (Disabling, Other)
  Sender: FDA-Public Use
  Company Number: US-GLAXOSMITHKLINE-A0562048A

PATIENT
  Age: 74 Year
  Sex: Female

DRUGS (6)
  1. AVANDIA [Suspect]
     Dosage: 8MG PER DAY
     Route: 048
     Dates: start: 20040901, end: 20050527
  2. STARLIX [Concomitant]
  3. GLUCOPHAGE [Concomitant]
  4. PREMARIN [Concomitant]
  5. TYLENOL (CAPLET) [Concomitant]
  6. NAPROXEN [Concomitant]

REACTIONS (7)
  - ASCITES [None]
  - FLUID RETENTION [None]
  - HEPATIC CIRRHOSIS [None]
  - OEDEMA [None]
  - PAIN [None]
  - PAIN OF SKIN [None]
  - WOUND SECRETION [None]
